FAERS Safety Report 18441112 (Version 6)
Quarter: 2021Q2

REPORT INFORMATION
  Report Type: Spontaneous
  Country: US (occurrence: US)
  Receive Date: 20201029
  Receipt Date: 20210412
  Transmission Date: 20210717
  Serious: Yes (Other)
  Sender: FDA-Public Use
  Company Number: US-CELGENEUS-USA-20200905491

PATIENT
  Age: 51 Year
  Sex: Female

DRUGS (6)
  1. ZEPOSIA [Suspect]
     Active Substance: OZANIMOD HYDROCHLORIDE
     Dosage: BLISTER PACK
     Route: 048
     Dates: start: 20200922, end: 20200928
  2. DESVENLAFAXINE. [Concomitant]
     Active Substance: DESVENLAFAXINE
     Route: 065
     Dates: start: 202009
  3. ZEPOSIA [Suspect]
     Active Substance: OZANIMOD HYDROCHLORIDE
     Dosage: .92 MILLIGRAM
     Route: 048
     Dates: start: 20200929
  4. DESVENLAFAXINE. [Concomitant]
     Active Substance: DESVENLAFAXINE
     Indication: PRODUCT USED FOR UNKNOWN INDICATION
     Route: 065
     Dates: end: 20200915
  5. ZEPOSIA [Suspect]
     Active Substance: OZANIMOD HYDROCHLORIDE
     Indication: MULTIPLE SCLEROSIS
     Dosage: BLISTER PACK
     Route: 048
     Dates: start: 20200916, end: 20200918
  6. XANAX [Concomitant]
     Active Substance: ALPRAZOLAM
     Indication: PRODUCT USED FOR UNKNOWN INDICATION
     Route: 065

REACTIONS (6)
  - Eye movement disorder [Recovered/Resolved]
  - Ophthalmic migraine [Not Recovered/Not Resolved]
  - Headache [Not Recovered/Not Resolved]
  - Head discomfort [Not Recovered/Not Resolved]
  - Blood pressure increased [Recovered/Resolved]
  - Dizziness [Not Recovered/Not Resolved]

NARRATIVE: CASE EVENT DATE: 20200916
